FAERS Safety Report 7668362-X (Version None)
Quarter: 2011Q3

REPORT INFORMATION
  Report Type: 
  Country: None (occurrence: None)
  Receive Date: 20110803
  Receipt Date: 20110719
  Transmission Date: 20111222
  Serious: Yes (Disabling, Other)
  Sender: FDA-Public Use
  Company Number: 2011MA009120

PATIENT
  Sex: Female

DRUGS (1)
  1. METOCLOPRAMIDE [Suspect]
     Indication: PRODUCT USED FOR UNKNOWN INDICATION
     Dates: start: 20030101, end: 20100601

REACTIONS (11)
  - MULTIPLE INJURIES [None]
  - NERVOUS SYSTEM DISORDER [None]
  - ACTIVITIES OF DAILY LIVING IMPAIRED [None]
  - PAIN [None]
  - INCORRECT DRUG ADMINISTRATION DURATION [None]
  - MOVEMENT DISORDER [None]
  - QUALITY OF LIFE DECREASED [None]
  - DEFORMITY [None]
  - TARDIVE DYSKINESIA [None]
  - EXTRAPYRAMIDAL DISORDER [None]
  - MENTAL DISORDER [None]
